FAERS Safety Report 6578934-1 (Version None)
Quarter: 2010Q1

REPORT INFORMATION
  Report Type: 
  Country: None (occurrence: None)
  Receive Date: 20100212
  Receipt Date: 20100112
  Transmission Date: 20100710
  Serious: No
  Sender: FDA-Public Use
  Company Number: US-BAYER-201011431NA

PATIENT
  Age: 45 Year
  Sex: Female

DRUGS (1)
  1. MIRENA [Suspect]
     Indication: INTRA-UTERINE CONTRACEPTIVE DEVICE
     Dosage: FREQUENCY CONTINUOUS
     Route: 015
     Dates: start: 20091208, end: 20091223

REACTIONS (3)
  - MEDICAL DEVICE COMPLICATION [None]
  - MENORRHAGIA [None]
  - MUSCLE SPASMS [None]
